FAERS Safety Report 7883995-3 (Version None)
Quarter: 2011Q4

REPORT INFORMATION
  Report Type: 
  Country: None (occurrence: None)
  Receive Date: 20111102
  Receipt Date: 20111020
  Transmission Date: 20120403
  Serious: Yes (Hospitalization)
  Sender: FDA-Public Use
  Company Number: PHHO2011FR11616

PATIENT
  Sex: Male
  Weight: 70 kg

DRUGS (14)
  1. TAMSULOSIN HCL [Concomitant]
  2. AMLODIPINE BESYLATE [Concomitant]
  3. RAD 666 / RAD 001A [Suspect]
     Indication: RENAL TRANSPLANT
     Dosage: 4.5 MG, QD
     Route: 048
     Dates: start: 20100904
  4. ARANESP [Concomitant]
  5. COVERAM (PERINDOPRIL ARGININE/AMLODIPINE) [Concomitant]
     Dosage: 1 TAB, QD
  6. PERINDOPRIL ERBUMINE [Concomitant]
  7. PREDNISONE [Suspect]
     Dosage: 10 MG, QD
     Route: 048
     Dates: start: 20100722
  8. LASIX [Concomitant]
     Dosage: 40 MG, QD
  9. ATORVASTATIN CALCIUM [Suspect]
     Dosage: 20 MG, DAILY
     Route: 048
     Dates: start: 20110413
  10. UVEDOSE [Concomitant]
     Dosage: 1 PER MONTH
  11. MYCOPHENOLATE MOFETIL (CELLCEPT) [Suspect]
     Dosage: 3 G, QD
     Route: 048
     Dates: start: 20100721
  12. SECTRAL [Concomitant]
     Dosage: 200 MG, BID
  13. SPECIAFOLDINE [Concomitant]
     Dosage: 5 MG, QD
  14. AVODART [Concomitant]
     Dosage: 1 TAB, QD

REACTIONS (4)
  - RENAL FAILURE ACUTE [None]
  - SEPSIS [None]
  - RENAL TUBULAR NECROSIS [None]
  - PNEUMONIA LEGIONELLA [None]
